FAERS Safety Report 10537277 (Version 1)
Quarter: 2014Q4

REPORT INFORMATION
  Report Type: Spontaneous
  Country: CH (occurrence: CH)
  Receive Date: 20141023
  Receipt Date: 20141023
  Transmission Date: 20150529
  Serious: Yes (Other)
  Sender: FDA-Public Use
  Company Number: CH-MERCK-1410CHE008742

PATIENT
  Age: 22 Year
  Sex: Female

DRUGS (11)
  1. CANCIDAS [Suspect]
     Active Substance: CASPOFUNGIN ACETATE
     Dosage: UNK
     Dates: start: 20140817
  2. ESOMEP [Suspect]
     Active Substance: ESOMEPRAZOLE
     Dosage: 40 MG, BID
     Route: 040
     Dates: start: 20140802, end: 20140805
  3. ESOMEP [Suspect]
     Active Substance: ESOMEPRAZOLE
     Dosage: 40 UNK, UNK
     Route: 048
     Dates: start: 20140806
  4. AUGMENTIN [Suspect]
     Active Substance: AMOXICILLIN\CLAVULANATE POTASSIUM
     Indication: ANTIBIOTIC THERAPY
     Dosage: 2.2 G, Q8H, ALSO REPORTED AS TID
     Route: 042
     Dates: start: 20140727, end: 20140802
  5. CANCIDAS [Suspect]
     Active Substance: CASPOFUNGIN ACETATE
     Dosage: UNK
     Dates: start: 20140813, end: 20140814
  6. DIFLUCAN [Suspect]
     Active Substance: FLUCONAZOLE
     Dosage: UNK
     Dates: start: 20140814, end: 20140817
  7. ROCEPHIN [Concomitant]
     Active Substance: CEFTRIAXONE SODIUM
     Dosage: UNK
     Dates: start: 20140805, end: 20140810
  8. MERONEM [Concomitant]
     Active Substance: MEROPENEM
     Dosage: UNK
     Dates: start: 20140810, end: 20140813
  9. TAVANIC [Suspect]
     Active Substance: LEVOFLOXACIN
     Indication: ANTIBIOTIC THERAPY
     Dosage: 200 MG, ONCE
     Route: 040
     Dates: start: 20140813, end: 20140819
  10. ESOMEP [Suspect]
     Active Substance: ESOMEPRAZOLE
     Indication: GASTROINTESTINAL ULCER
     Dosage: 40 MG, ONCE
     Route: 040
     Dates: start: 20140727, end: 20140727
  11. ESOMEP [Suspect]
     Active Substance: ESOMEPRAZOLE
     Dosage: 40 MG, Q8H
     Route: 040
     Dates: start: 20140728, end: 20140801

REACTIONS (2)
  - Liver disorder [Recovered/Resolved]
  - Transaminases increased [Recovered/Resolved]

NARRATIVE: CASE EVENT DATE: 20140813
